FAERS Safety Report 24916969 (Version 1)
Quarter: 2025Q1

REPORT INFORMATION
  Report Type: Spontaneous
  Country: US (occurrence: None)
  Receive Date: 20250201
  Receipt Date: 20250201
  Transmission Date: 20250409
  Serious: Yes (Other)
  Sender: FDA-CTU
  Company Number: None

PATIENT
  Age: 16 Year
  Sex: Male
  Weight: 70.8 kg

DRUGS (1)
  1. CABOTEGRAVIR [Suspect]
     Active Substance: CABOTEGRAVIR
     Indication: HIV infection
     Route: 030
     Dates: start: 20250131

REACTIONS (9)
  - Hypersensitivity [None]
  - Anaphylactic reaction [None]
  - Abdominal pain [None]
  - Dyspnoea [None]
  - Nonspecific reaction [None]
  - Rhinorrhoea [None]
  - Pruritus [None]
  - Swelling [None]
  - Skin discolouration [None]

NARRATIVE: CASE EVENT DATE: 20250131
